FAERS Safety Report 8397057 (Version 2)
Quarter: 2012Q4

REPORT INFORMATION
  Report Type: 
  Country: BR (occurrence: BR)
  Receive Date: 20120209
  Receipt Date: 20121221
  Transmission Date: 20130627
  Serious: Yes (Other)
  Sender: FDA-Public Use
  Company Number: BR-BAYER-2012-010430

PATIENT
  Age: 30 Year
  Sex: Female

DRUGS (4)
  1. YASMIN [Suspect]
     Indication: ORAL CONTRACEPTION
     Dosage: 1 DF, QD
     Route: 048
     Dates: start: 201110, end: 20120105
  2. UNCODEABLE ^UNCLASSIFIABLE^ [Concomitant]
     Indication: HYPOTHYROIDISM
     Dosage: UNK
     Route: 048
  3. PURAN T4 [Concomitant]
     Indication: HYPOTHYROIDISM
     Dosage: 50 mg, QD
     Route: 048
     Dates: start: 2011
  4. GLIFAGE [Concomitant]
     Indication: DIABETES PROPHYLAXIS
     Dosage: 1 DF, QD
     Route: 048
     Dates: start: 201112

REACTIONS (4)
  - Metrorrhagia [None]
  - Pregnancy on oral contraceptive [Recovered/Resolved]
  - Haemorrhage in pregnancy [None]
  - Inappropriate schedule of drug administration [None]
